FAERS Safety Report 16626204 (Version 3)
Quarter: 2019Q4

REPORT INFORMATION
  Report Type: Spontaneous
  Country: US (occurrence: US)
  Receive Date: 20190724
  Receipt Date: 20191217
  Transmission Date: 20200122
  Serious: Yes (Other)
  Sender: FDA-Public Use
  Company Number: US-SA-2019SA199057

PATIENT
  Age: 56 Year
  Sex: Male

DRUGS (1)
  1. ALPROLIX [Suspect]
     Active Substance: EFTRENONACOG ALFA
     Dosage: 4000 UN, UNK
     Route: 042

REACTIONS (5)
  - Traumatic haemorrhage [Recovered/Resolved]
  - Haemorrhage [Recovered/Resolved]
  - Limb injury [Recovered/Resolved]
  - Haemarthrosis [Recovered/Resolved]
  - Gastrointestinal haemorrhage [Recovered/Resolved]

NARRATIVE: CASE EVENT DATE: 20190717
